FAERS Safety Report 15229979 (Version 1)
Quarter: 2018Q3

REPORT INFORMATION
  Report Type: Report from Study
  Country: None (occurrence: US)
  Receive Date: 20180802
  Receipt Date: 20180802
  Transmission Date: 20181010
  Serious: Yes (Other)
  Sender: FDA-Public Use
  Company Number: US-ABBVIE-18K-163-2265408-00

PATIENT
  Age: 43 Year
  Sex: Male

DRUGS (1)
  1. HUMIRA [Suspect]
     Active Substance: ADALIMUMAB
     Indication: CROHN^S DISEASE
     Route: 058
     Dates: end: 201806

REACTIONS (10)
  - Fatigue [Unknown]
  - Sinusitis [Not Recovered/Not Resolved]
  - Hernia [Unknown]
  - Liver disorder [Unknown]
  - Defaecation urgency [Unknown]
  - Renal disorder [Unknown]
  - Liver disorder [Unknown]
  - Pancreatic disorder [Unknown]
  - Crohn^s disease [Recovering/Resolving]
  - Post procedural complication [Unknown]

NARRATIVE: CASE EVENT DATE: 2018
